FAERS Safety Report 9739833 (Version 4)
Quarter: 2014Q2

REPORT INFORMATION
  Report Type: Spontaneous
  Country: US (occurrence: US)
  Receive Date: 20131209
  Receipt Date: 20140428
  Transmission Date: 20141212
  Serious: Yes (Death, Hospitalization, Other)
  Sender: FDA-Public Use
  Company Number: US-ASTELLAS-2013US011381

PATIENT
  Age: 50 Year
  Sex: Male

DRUGS (1)
  1. XTANDI [Suspect]
     Indication: PROSTATE CANCER
     Route: 048
     Dates: start: 20130925

REACTIONS (9)
  - Lymphadenopathy [Fatal]
  - Haemorrhage [Fatal]
  - Hydronephrosis [Fatal]
  - Myalgia [Unknown]
  - Urinary retention [Fatal]
  - Renal failure acute [Fatal]
  - Abdominal pain [Fatal]
  - Haematuria [Fatal]
  - Malignant neoplasm progression [Fatal]
